FAERS Safety Report 23721869 (Version 1)
Quarter: 2024Q2

REPORT INFORMATION
  Report Type: Spontaneous
  Country: US (occurrence: US)
  Receive Date: 20240409
  Receipt Date: 20240409
  Transmission Date: 20240715
  Serious: Yes (Hospitalization, Other)
  Sender: FDA-Public Use
  Company Number: US-SANDOZ-SDZ2024US036829

PATIENT
  Age: 33 Year
  Sex: Male

DRUGS (1)
  1. TESTOSTERONE [Suspect]
     Active Substance: TESTOSTERONE
     Indication: Product used for unknown indication
     Dosage: 250-300 MG WEEKLY
     Route: 065

REACTIONS (2)
  - Drug abuse [Unknown]
  - Acute myocardial infarction [Recovered/Resolved]
